FAERS Safety Report 10383175 (Version 1)
Quarter: 2014Q3

REPORT INFORMATION
  Report Type: Spontaneous
  Country: JP (occurrence: JP)
  Receive Date: 20140813
  Receipt Date: 20140813
  Transmission Date: 20150326
  Serious: Yes (Other)
  Sender: FDA-Public Use
  Company Number: PHHY2014JP099410

PATIENT

DRUGS (2)
  1. GLIVEC [Suspect]
     Active Substance: IMATINIB MESYLATE
     Dosage: 400 MG, UNK
     Route: 048
     Dates: start: 2009
  2. BASEN//VOGLIBOSE [Concomitant]
     Active Substance: VOGLIBOSE
     Indication: BLOOD GLUCOSE INCREASED
     Dosage: UNK UKN, UNK
     Route: 048
     Dates: start: 201403

REACTIONS (4)
  - Nausea [Unknown]
  - Dizziness [Unknown]
  - Gastric cancer [Unknown]
  - Malaise [Unknown]

NARRATIVE: CASE EVENT DATE: 201405
